FAERS Safety Report 7118915-2 (Version None)
Quarter: 2010Q4

REPORT INFORMATION
  Report Type: 
  Country: None (occurrence: None)
  Receive Date: 20101123
  Receipt Date: 20101112
  Transmission Date: 20110411
  Serious: Yes (Hospitalization)
  Sender: FDA-Public Use
  Company Number: DE-ELI_LILLY_AND_COMPANY-DE200705004022

PATIENT
  Sex: Female
  Weight: 66.8 kg

DRUGS (3)
  1. GEMCITABINE HCL [Suspect]
     Indication: BREAST CANCER
     Dosage: 1700 MG, UNK
     Route: 042
     Dates: start: 20070507
  2. DEXAMETHASONE [Concomitant]
     Indication: NAUSEA
     Dosage: 8 MG, UNK
     Route: 042
     Dates: start: 20070507, end: 20070509
  3. KEVATRIL [Concomitant]
     Indication: NAUSEA
     Dosage: 1 MG, UNK
     Route: 042
     Dates: start: 20070507, end: 20070509

REACTIONS (1)
  - PNEUMONIA [None]
